FAERS Safety Report 11932020 (Version 1)
Quarter: 2016Q1

REPORT INFORMATION
  Report Type: Spontaneous
  Country: US (occurrence: US)
  Receive Date: 20160120
  Receipt Date: 20160120
  Transmission Date: 20160526
  Serious: No
  Sender: FDA-Public Use
  Company Number: US-PFIZER INC-2016025180

PATIENT
  Age: 43 Year
  Sex: Female
  Weight: 94.35 kg

DRUGS (1)
  1. LYRICA [Suspect]
     Active Substance: PREGABALIN
     Indication: FIBROMYALGIA
     Dosage: 150 MG IN MORNING AND 150 MG AT NIGHT

REACTIONS (1)
  - Headache [Not Recovered/Not Resolved]
